FAERS Safety Report 7801328-5 (Version None)
Quarter: 2011Q4

REPORT INFORMATION
  Report Type: 
  Country: None (occurrence: None)
  Receive Date: 20111006
  Receipt Date: 20111006
  Transmission Date: 20120403
  Serious: Yes (Hospitalization)
  Sender: FDA-Public Use
  Company Number: None

PATIENT
  Age: 55 Year
  Sex: Male
  Weight: 67.5 kg

DRUGS (12)
  1. VITAMIN B-12 [Concomitant]
  2. TYLENOL-500 [Concomitant]
  3. ASPIRIN [Concomitant]
  4. FOLIC ACID [Concomitant]
  5. SIMETHICONE [Concomitant]
  6. DILANTIN [Suspect]
     Indication: CONVULSION
     Dosage: 300MG BID PO CHRONIC
     Route: 048
  7. SIMVASTATIN [Concomitant]
  8. M.V.I. [Concomitant]
  9. VIT D [Concomitant]
  10. DEPAKOTE [Concomitant]
  11. FAMOTIDINE [Concomitant]
  12. LORATADINE [Concomitant]

REACTIONS (3)
  - ATAXIA [None]
  - TOXICITY TO VARIOUS AGENTS [None]
  - BALANCE DISORDER [None]
